FAERS Safety Report 25481370 (Version 2)
Quarter: 2025Q4

REPORT INFORMATION
  Report Type: Spontaneous
  Country: US (occurrence: US)
  Receive Date: 20250626
  Receipt Date: 20251118
  Transmission Date: 20260118
  Serious: Yes (Death, Hospitalization, Other)
  Sender: GLAXOSMITHKLINE
  Company Number: US-GLAXOSMITHKLINE INC-US2025AMR078258

PATIENT
  Age: 29 Year
  Sex: Female

DRUGS (1)
  1. NUCALA [Suspect]
     Active Substance: MEPOLIZUMAB
     Indication: Asthma
     Dosage: 100 MG, Q4W

REACTIONS (10)
  - Gastrointestinal disorder [Fatal]
  - Liver disorder [Fatal]
  - Gastrointestinal haemorrhage [Unknown]
  - Gastritis [Not Recovered/Not Resolved]
  - Proctitis [Unknown]
  - Abdominal compartment syndrome [Not Recovered/Not Resolved]
  - Pseudomonas infection [Unknown]
  - Gastrooesophageal reflux disease [Recovered/Resolved]
  - Oesophagitis [Recovered/Resolved]
  - Epstein-Barr virus infection [Unknown]

NARRATIVE: CASE EVENT DATE: 20240721
